FAERS Safety Report 13781628 (Version 4)
Quarter: 2017Q4

REPORT INFORMATION
  Report Type: Report from Study
  Country: None (occurrence: US)
  Receive Date: 20170724
  Receipt Date: 20171219
  Transmission Date: 20180320
  Serious: Yes (Hospitalization, Other)
  Sender: FDA-Public Use
  Company Number: US-ABBVIE-17K-163-1967047-00

PATIENT
  Sex: Female
  Weight: 68.1 kg

DRUGS (3)
  1. HUMIRA [Suspect]
     Active Substance: ADALIMUMAB
     Indication: RHEUMATOID ARTHRITIS
     Route: 058
     Dates: start: 20170201, end: 201704
  2. HUMIRA [Suspect]
     Active Substance: ADALIMUMAB
     Route: 058
     Dates: start: 201705
  3. OMEPRAZOLE. [Concomitant]
     Active Substance: OMEPRAZOLE
     Indication: PRODUCT USED FOR UNKNOWN INDICATION

REACTIONS (8)
  - Atrial fibrillation [Recovered/Resolved]
  - Hip surgery [Recovering/Resolving]
  - Blood pressure abnormal [Recovered/Resolved]
  - Intervertebral disc protrusion [Recovered/Resolved]
  - Joint effusion [Unknown]
  - Arthropathy [Unknown]
  - Atrial fibrillation [Recovered/Resolved]
  - Rheumatoid arthritis [Not Recovered/Not Resolved]

NARRATIVE: CASE EVENT DATE: 2017
